FAERS Safety Report 6282683-7 (Version None)
Quarter: 2009Q3

REPORT INFORMATION
  Report Type: 
  Country: None (occurrence: None)
  Receive Date: 20090724
  Receipt Date: 20090721
  Transmission Date: 20100115
  Serious: Yes (Death, Hospitalization)
  Sender: FDA-Public Use
  Company Number: PHHY2009EC30401

PATIENT
  Age: 89 Year
  Sex: Female

DRUGS (2)
  1. EXELON [Suspect]
     Indication: DEMENTIA ALZHEIMER'S TYPE
     Dosage: 1.5 MG QAM AND 3.0 MG QHS
     Route: 048
     Dates: start: 20031202
  2. INDERAL [Concomitant]
     Indication: ESSENTIAL TREMOR
     Dosage: 120 MG/DAY

REACTIONS (3)
  - BRONCHOPNEUMONIA [None]
  - CARDIAC FAILURE [None]
  - CARDIOVASCULAR DISORDER [None]
